FAERS Safety Report 25305699 (Version 1)
Quarter: 2025Q2

REPORT INFORMATION
  Report Type: Report from Study
  Country: IL (occurrence: IL)
  Receive Date: 20250513
  Receipt Date: 20250513
  Transmission Date: 20250717
  Serious: Yes (Other)
  Sender: RANBAXY
  Company Number: IL-SUN PHARMACEUTICAL INDUSTRIES LTD-2025R1-507084

PATIENT
  Age: 49 Year
  Sex: Female

DRUGS (1)
  1. LEVETIRACETAM [Suspect]
     Active Substance: LEVETIRACETAM
     Indication: Seizure
     Route: 065

REACTIONS (1)
  - Condition aggravated [Unknown]
